FAERS Safety Report 9505525 (Version 1)
Quarter: 2013Q1

REPORT INFORMATION
  Report Type: Spontaneous
  Country: US (occurrence: None)
  Receive Date: 20130220
  Receipt Date: 20130220
  Transmission Date: 20140127
  Serious: No
  Sender: FDA-Public Use
  Company Number: 1000040284

PATIENT
  Sex: Female

DRUGS (5)
  1. VIIBRYD (VILADOZOONE HYDROCHLORIDE) (10MILLIGRAM, TABLETS) [Suspect]
     Indication: DEPRESSION
     Route: 048
  2. VIIBRYD (VILADOZOONE HYDROCHLORIDE) (10MILLIGRAM, TABLETS) [Suspect]
     Indication: ANXIETY
     Route: 048
  3. VIIBRYD (VILAZODONE) (20 MILLIGRAM, TABLETS) [Suspect]
     Indication: DEPRESSION
     Route: 048
  4. VIIBRYD (VILAZODONE) (20 MILLIGRAM, TABLETS) [Suspect]
     Indication: ANXIETY
     Route: 048
  5. EFFEXOR (VENLAFAXINE HYDROCHLORIDE) (VENLAFAXINE HYDROCHLORIDE) [Concomitant]

REACTIONS (3)
  - Confusional state [None]
  - Irritability [None]
  - Feeling abnormal [None]
